FAERS Safety Report 5607479-8 (Version None)
Quarter: 2008Q1

REPORT INFORMATION
  Report Type: 
  Country: None (occurrence: None)
  Receive Date: 20080125
  Receipt Date: 20080111
  Transmission Date: 20080703
  Serious: Yes (Death, Life-Threatening, Hospitalization, Other)
  Sender: FDA-Public Use
  Company Number: 2008P1000006

PATIENT
  Age: 64 Year
  Sex: Male

DRUGS (5)
  1. BUSULFAN (BUSULFAN) [Suspect]
     Indication: STEM CELL TRANSPLANT
     Dosage: 2.4 ML; X1; I V, 3.2 ML; X1; IV, 0.8 ML; X1; IV
     Route: 042
     Dates: start: 20071031, end: 20071031
  2. BUSULFAN (BUSULFAN) [Suspect]
     Indication: STEM CELL TRANSPLANT
     Dosage: 2.4 ML; X1; I V, 3.2 ML; X1; IV, 0.8 ML; X1; IV
     Route: 042
     Dates: start: 20071101, end: 20071101
  3. BUSULFAN (BUSULFAN) [Suspect]
     Indication: STEM CELL TRANSPLANT
     Dosage: 2.4 ML; X1; I V, 3.2 ML; X1; IV, 0.8 ML; X1; IV
     Route: 042
     Dates: start: 20071102, end: 20071102
  4. FLUDARABINE PHOSPHATE [Concomitant]
  5. LORAZEPAM [Concomitant]

REACTIONS (22)
  - ANOREXIA [None]
  - BACTERIAL SEPSIS [None]
  - BLOOD LACTATE DEHYDROGENASE INCREASED [None]
  - BLOOD PRESSURE DECREASED [None]
  - CELLULITIS [None]
  - CORD BLOOD TRANSPLANT THERAPY [None]
  - DIARRHOEA [None]
  - HAEMODIALYSIS [None]
  - HEPATIC FUNCTION ABNORMAL [None]
  - HUMAN HERPESVIRUS 6 INFECTION [None]
  - MALAISE [None]
  - MULTI-ORGAN FAILURE [None]
  - NAUSEA [None]
  - OEDEMA PERIPHERAL [None]
  - PNEUMONIA [None]
  - PNEUMONIA BACTERIAL [None]
  - RENAL FAILURE ACUTE [None]
  - STENOTROPHOMONAS SEPSIS [None]
  - STOMATITIS [None]
  - URINE OUTPUT DECREASED [None]
  - VIRAEMIA [None]
  - VOMITING [None]
